FAERS Safety Report 6921006-4 (Version None)
Quarter: 2010Q3

REPORT INFORMATION
  Report Type: 
  Country: None (occurrence: None)
  Receive Date: 20100812
  Receipt Date: 20100809
  Transmission Date: 20110219
  Serious: Yes (Other)
  Sender: FDA-Public Use
  Company Number: FR-ROCHE-705447

PATIENT
  Age: 40 Year
  Sex: Female

DRUGS (26)
  1. RIVOTRIL [Suspect]
     Route: 065
     Dates: start: 20020101
  2. AMITRIPTYLINE HCL [Suspect]
     Dosage: 18 DROPS MORNING AND EVENING
     Route: 048
     Dates: start: 20020101, end: 20081001
  3. AMITRIPTYLINE HCL [Suspect]
     Dosage: STRENGTH: 40 MG/ML; DOSE: 1 BOTTLE; DRUG INTOXICATION
     Route: 048
     Dates: start: 20081116
  4. LEXOMIL [Suspect]
     Route: 065
     Dates: end: 20081001
  5. LEXOMIL [Suspect]
     Dosage: DRUG INTOXICATION
     Route: 065
     Dates: start: 20081116
  6. LYSANXIA [Suspect]
     Route: 065
     Dates: start: 20020101, end: 20081001
  7. TOPIRAMATE [Suspect]
     Route: 065
     Dates: start: 20020101, end: 20081001
  8. ZYPREXA [Suspect]
     Dosage: COATED TABLET
     Route: 065
     Dates: start: 20081001
  9. ZYPREXA [Suspect]
     Route: 065
     Dates: start: 20081118
  10. ZYPREXA [Suspect]
     Route: 065
     Dates: start: 20081126
  11. ZYPREXA [Suspect]
     Route: 065
     Dates: start: 20090213
  12. IMOVANE [Suspect]
     Dosage: FORM: DIVISIBLE COATED TABLET
     Route: 065
     Dates: start: 20081118, end: 20090201
  13. LARGACTIL [Suspect]
     Route: 048
     Dates: start: 20081118
  14. SERESTA [Suspect]
     Route: 065
     Dates: start: 20081118
  15. SPASFON-LYOC [Suspect]
     Indication: PRODUCT USED FOR UNKNOWN INDICATION
     Dosage: FORM: LYOPHILISATE
     Route: 048
     Dates: start: 20081118
  16. EFFEXOR [Suspect]
     Route: 065
     Dates: start: 20081120
  17. EFFEXOR [Suspect]
     Dosage: DOSE INCREASED
     Route: 065
  18. STILNOX [Suspect]
     Dosage: FORM: DIVISIBLE COATED TABLET
     Route: 065
     Dates: start: 20081126, end: 20081201
  19. TRIMEPRAZINE TAB [Suspect]
     Route: 048
     Dates: start: 20090115
  20. TRIMEPRAZINE TAB [Suspect]
     Dosage: DOSE REDUCED
     Route: 048
  21. ESCITALOPRAM OXALATE [Suspect]
     Dosage: FORM: DIVISIBLE COATED TABLET
     Route: 065
     Dates: start: 20090213, end: 20090228
  22. AKINETON [Suspect]
     Dosage: DRUG NAME: AKINETON L.P., COATED TABLET
     Route: 065
     Dates: start: 20090213
  23. NEULEPTIL [Suspect]
     Dosage: 10-0-40 DROPS
     Route: 048
     Dates: start: 20090225
  24. AMOXICILLIN [Suspect]
     Indication: PRODUCT USED FOR UNKNOWN INDICATION
     Dosage: FORM: DISPERSIBLE TABLET
     Route: 065
     Dates: start: 20090225
  25. GYNO-PEVARYL [Concomitant]
     Route: 067
     Dates: start: 20081126, end: 20081202
  26. FLAGYL [Concomitant]
     Dosage: COATED TABLET
     Route: 048
     Dates: start: 20081126, end: 20081202

REACTIONS (1)
  - INTRA-UTERINE DEATH [None]
